FAERS Safety Report 4518460-4 (Version None)
Quarter: 2004Q4

REPORT INFORMATION
  Report Type: 
  Country: None (occurrence: None)
  Receive Date: 20041202
  Receipt Date: 20041123
  Transmission Date: 20050328
  Serious: Yes (Other)
  Sender: FDA-Public Use
  Company Number: 2004-10-1707

PATIENT
  Age: 46 Year
  Sex: Male
  Weight: 99.7913 kg

DRUGS (9)
  1. PEG-INTRON [Suspect]
     Indication: HEPATITIS C
     Dosage: 150 MCG QWK SUBCUTANEOUS
     Route: 058
     Dates: start: 20040219, end: 20041008
  2. REBETOL [Suspect]
     Indication: HEPATITIS C
     Dosage: 1200 MG QD ORAL
     Route: 048
     Dates: start: 20040219, end: 20041008
  3. FLONASE [Concomitant]
  4. HYDROCHLOROTHIAZIDE [Concomitant]
  5. VIOXX [Concomitant]
  6. CITALOPRAM [Concomitant]
  7. SIMOVL (SIMVASTATIN) [Concomitant]
  8. RABEPRAZOLE SODIUM [Concomitant]
  9. . [Concomitant]

REACTIONS (2)
  - AUTOIMMUNE HEPATITIS [None]
  - HYPERSENSITIVITY [None]
